FAERS Safety Report 18019260 (Version 1)
Quarter: 2020Q3

REPORT INFORMATION
  Report Type: Spontaneous
  Country: US (occurrence: US)
  Receive Date: 20200713
  Receipt Date: 20200713
  Transmission Date: 20201103
  Serious: No
  Sender: FDA-Public Use
  Company Number: None

PATIENT
  Age: 67 Year
  Sex: Male
  Weight: 76.5 kg

DRUGS (4)
  1. AMLODIPINE [Concomitant]
     Active Substance: AMLODIPINE BESYLATE
  2. STATIN [Concomitant]
     Active Substance: UNSPECIFIED INGREDIENT
  3. CARBAMAZEPINE CHEW TAB 100 MG [Suspect]
     Active Substance: CARBAMAZEPINE
     Indication: TINNITUS
     Route: 048
     Dates: start: 20200701
  4. VITAMIN D3 [Concomitant]
     Active Substance: CHOLECALCIFEROL

REACTIONS (5)
  - Manufacturing issue [None]
  - Therapeutic product effect decreased [None]
  - Throat irritation [None]
  - Product physical issue [None]
  - Product quality issue [None]

NARRATIVE: CASE EVENT DATE: 20200701
